FAERS Safety Report 4694936-4 (Version None)
Quarter: 2005Q2

REPORT INFORMATION
  Report Type: 
  Country: None (occurrence: None)
  Receive Date: 20050617
  Receipt Date: 20050610
  Transmission Date: 20051028
  Serious: Yes (Death, Hospitalization, Other)
  Sender: FDA-Public Use
  Company Number: 2005-01154

PATIENT
  Age: 71 Year
  Sex: Male

DRUGS (5)
  1. VELCADE [Suspect]
     Dosage: 1.36 MG, SINGLE
     Dates: start: 20050314, end: 20050314
  2. TRAMADOL HCL [Concomitant]
  3. AREDIA [Concomitant]
  4. ZOMET0A          (ZOLEDRONIC ACID) [Concomitant]
  5. ACETAMINOPHEN [Concomitant]

REACTIONS (6)
  - ACUTE MYOCARDIAL INFARCTION [None]
  - CARDIAC TAMPONADE [None]
  - DYSPNOEA [None]
  - PANCYTOPENIA [None]
  - PYREXIA [None]
  - SHOCK [None]
